FAERS Safety Report 7420537-0 (Version None)
Quarter: 2011Q2

REPORT INFORMATION
  Report Type: 
  Country: None (occurrence: None)
  Receive Date: 20110418
  Receipt Date: 20110412
  Transmission Date: 20111010
  Serious: Yes (Death)
  Sender: FDA-Public Use
  Company Number: US-ASTRAZENECA-2011SE21120

PATIENT
  Age: 67 Year
  Sex: Female

DRUGS (7)
  1. NEXIUM [Suspect]
     Route: 048
     Dates: end: 20110114
  2. MEROPENEM [Suspect]
     Route: 042
     Dates: start: 20110105, end: 20110112
  3. CIPROFLOXACIN [Suspect]
     Route: 042
     Dates: start: 20110107, end: 20110113
  4. PROPOFOL [Concomitant]
     Route: 042
     Dates: start: 20110109, end: 20110111
  5. VANCOMYCIN [Suspect]
     Route: 048
     Dates: start: 20110106, end: 20110112
  6. FLAGYL [Suspect]
     Route: 048
     Dates: start: 20110104, end: 20110114
  7. BENERVA [Concomitant]

REACTIONS (4)
  - CEREBRAL INFARCTION [None]
  - PUPILS UNEQUAL [None]
  - ATRIAL FIBRILLATION [None]
  - HEPATOCELLULAR INJURY [None]
